FAERS Safety Report 4962028-2 (Version None)
Quarter: 2006Q2

REPORT INFORMATION
  Report Type: 
  Country: None (occurrence: None)
  Receive Date: 20060404
  Receipt Date: 20060123
  Transmission Date: 20061013
  Serious: Yes (Other)
  Sender: FDA-Public Use
  Company Number: US-ROCHE-433383

PATIENT
  Age: 23 Year
  Sex: Male
  Weight: 49.9 kg

DRUGS (2)
  1. PEGASYS [Suspect]
     Indication: HEPATITIS B
     Dosage: MONOTHERAPY.
     Route: 058
     Dates: start: 20050603
  2. ADEFOVIR DIPIVOXIL KIT [Concomitant]
     Indication: HEPATITIS B
     Route: 048
     Dates: start: 20050803

REACTIONS (2)
  - ABORTION SPONTANEOUS [None]
  - TRANSMISSION OF DRUG VIA SEMEN [None]
